FAERS Safety Report 23599592 (Version 1)
Quarter: 2024Q1

REPORT INFORMATION
  Report Type: Spontaneous
  Country: JP (occurrence: JP)
  Receive Date: 20240306
  Receipt Date: 20240306
  Transmission Date: 20240410
  Serious: Yes (Death)
  Sender: FDA-Public Use
  Company Number: JP-UPSHER-SMITH LABORATORIES, LLC-2024USL00205

PATIENT
  Age: 71 Year
  Sex: Male

DRUGS (1)
  1. PITAVASTATIN CALCIUM [Suspect]
     Active Substance: PITAVASTATIN CALCIUM
     Indication: Dyslipidaemia
     Route: 048

REACTIONS (1)
  - Immune-mediated myositis [Fatal]
